FAERS Safety Report 4620833-6 (Version None)
Quarter: 2005Q1

REPORT INFORMATION
  Report Type: 
  Country: None (occurrence: None)
  Receive Date: 20050325
  Receipt Date: 20050314
  Transmission Date: 20050727
  Serious: Yes (Death)
  Sender: FDA-Public Use
  Company Number: DSA_70539_2004

PATIENT
  Age: 72 Year
  Sex: Male
  Weight: 92.5338 kg

DRUGS (12)
  1. AZATHIOPRINE [Suspect]
     Dosage: DF
     Dates: end: 20030601
  2. ALLOPURINOL [Suspect]
     Dosage: DF
     Dates: end: 20020401
  3. PROCRIT [Suspect]
     Indication: NEPHROGENIC ANAEMIA
     Dosage: 40000 IU DAILY SC
     Route: 058
     Dates: start: 20030909, end: 20030922
  4. PROCRIT [Suspect]
     Indication: NEPHROGENIC ANAEMIA
     Dosage: 60000 IU DAILY SC
     Route: 058
     Dates: start: 20030922, end: 20031217
  5. ARANESP [Suspect]
     Indication: NEPHROGENIC ANAEMIA
     Dosage: 200 MCG DAILY SC
     Route: 058
     Dates: start: 20030609, end: 20030701
  6. ARANESP [Suspect]
     Indication: NEPHROGENIC ANAEMIA
     Dosage: 300 MCG DAILY SC
     Route: 058
     Dates: start: 20030701, end: 20030909
  7. COUMADIN [Concomitant]
  8. LASIX [Concomitant]
  9. METOPROLOL TARTRATE [Concomitant]
  10. LEVOTHYROXINE SODIUM [Concomitant]
  11. PREDNISONE [Concomitant]
  12. CYCLOSPORINE [Concomitant]

REACTIONS (7)
  - APLASIA PURE RED CELL [None]
  - BONE MARROW DEPRESSION [None]
  - CARDIAC FAILURE CONGESTIVE [None]
  - DRUG INEFFECTIVE [None]
  - DRUG INTERACTION [None]
  - HAEMOCHROMATOSIS [None]
  - NORMOCHROMIC NORMOCYTIC ANAEMIA [None]
